FAERS Safety Report 6679469-8 (Version None)
Quarter: 2010Q2

REPORT INFORMATION
  Report Type: 
  Country: None (occurrence: None)
  Receive Date: 20100413
  Receipt Date: 20100401
  Transmission Date: 20101027
  Serious: Yes (Hospitalization)
  Sender: FDA-Public Use
  Company Number: US-CELGENEUS-163-21880-10030521

PATIENT
  Sex: Male
  Weight: 81.72 kg

DRUGS (3)
  1. REVLIMID [Suspect]
     Route: 048
     Dates: start: 20091222, end: 20100302
  2. RITUXIMAB [Suspect]
     Route: 051
     Dates: start: 20091215, end: 20100222
  3. FLUDARABINE [Suspect]
     Route: 051
     Dates: start: 20091215, end: 20100224

REACTIONS (2)
  - GASTROINTESTINAL INFECTION [None]
  - OEDEMA PERIPHERAL [None]
